FAERS Safety Report 11195399 (Version 1)
Quarter: 2015Q2

REPORT INFORMATION
  Report Type: Report from Study
  Country: US (occurrence: None)
  Receive Date: 20150603
  Receipt Date: 20150603
  Transmission Date: 20150821
  Serious: No
  Sender: FDA-Public Use
  Company Number: 2014TASUS000508

PATIENT
  Age: 44 Year
  Sex: Female
  Weight: 85.7 kg

DRUGS (10)
  1. LAMICTAL [Concomitant]
     Active Substance: LAMOTRIGINE
  2. HYDROCODONE [Concomitant]
     Active Substance: HYDROCODONE
  3. LISINOPRIL (LISINOPRIL DIHYDRATE) [Concomitant]
  4. NEURONTIN [Concomitant]
     Active Substance: GABAPENTIN
  5. OMNICEF (CEFOTAXIME SODIUM) [Concomitant]
  6. TIZANIDINE (TIZANIDINE) [Concomitant]
     Active Substance: TIZANIDINE
  7. KEPPRA [Concomitant]
     Active Substance: LEVETIRACETAM
  8. HETLIOZ [Suspect]
     Active Substance: TASIMELTEON
     Indication: SLEEP DISORDER
     Dates: start: 20140915, end: 20140915
  9. LASIX [Concomitant]
     Active Substance: FUROSEMIDE
  10. CELEBREX [Concomitant]
     Active Substance: CELECOXIB

REACTIONS (2)
  - Abnormal dreams [None]
  - Pain in extremity [None]

NARRATIVE: CASE EVENT DATE: 20140915
